FAERS Safety Report 9374917 (Version 1)
Quarter: 2013Q2

REPORT INFORMATION
  Report Type: Spontaneous
  Country: ES (occurrence: ES)
  Receive Date: 20130628
  Receipt Date: 20130628
  Transmission Date: 20140414
  Serious: Yes (Other)
  Sender: FDA-Public Use
  Company Number: ES-SANOFI-AVENTIS-2013SA062584

PATIENT
  Age: 53 Year
  Sex: Male

DRUGS (1)
  1. CLEXANE [Suspect]
     Indication: ACUTE MYOCARDIAL INFARCTION
     Route: 058
     Dates: start: 20130513, end: 20130516

REACTIONS (2)
  - Intracardiac thrombus [Not Recovered/Not Resolved]
  - Drug ineffective [Not Recovered/Not Resolved]
